FAERS Safety Report 11910040 (Version 1)
Quarter: 2016Q1

REPORT INFORMATION
  Report Type: Spontaneous
  Country: US (occurrence: None)
  Receive Date: 20160111
  Receipt Date: 20160111
  Transmission Date: 20160526
  Serious: No
  Sender: FDA-Public Use
  Company Number: None

PATIENT
  Age: 49 Year
  Sex: Male

DRUGS (1)
  1. HARVONI [Suspect]
     Active Substance: LEDIPASVIR\SOFOSBUVIR
     Indication: HEPATITIS C
     Dosage: START DATE: 12/08/2016
     Route: 048

REACTIONS (4)
  - Fatigue [None]
  - Libido increased [None]
  - Headache [None]
  - Penile pain [None]

NARRATIVE: CASE EVENT DATE: 20151208
